FAERS Safety Report 13803392 (Version 1)
Quarter: 2017Q3

REPORT INFORMATION
  Report Type: Spontaneous
  Country: CN (occurrence: CN)
  Receive Date: 20170728
  Receipt Date: 20170728
  Transmission Date: 20171127
  Serious: Yes (Other)
  Sender: FDA-Public Use
  Company Number: CN-ASTELLAS-2017US029980

PATIENT
  Age: 18 Year
  Sex: Male

DRUGS (6)
  1. TORASEMIDE [Concomitant]
     Active Substance: TORSEMIDE
     Indication: DIURETIC THERAPY
     Route: 042
  2. METHYLPREDNISOLONE. [Concomitant]
     Active Substance: METHYLPREDNISOLONE
     Indication: NEPHROTIC SYNDROME
     Route: 048
  3. PREDNISONE. [Concomitant]
     Active Substance: PREDNISONE
     Indication: NEPHROTIC SYNDROME
     Dosage: UNK UNK, UNKNOWN FREQ.
     Route: 065
  4. COMPOUND GLYCYRRHIZA [Concomitant]
     Indication: PRODUCT USED FOR UNKNOWN INDICATION
     Dosage: 20 MG, GTT, ONCE DAILY
     Route: 042
  5. TACROLIMUS. [Suspect]
     Active Substance: TACROLIMUS
     Indication: NEPHROTIC SYNDROME
     Route: 048
  6. LEFLUNOMIDE. [Concomitant]
     Active Substance: LEFLUNOMIDE
     Indication: NEPHROTIC SYNDROME
     Dosage: UNK UNK, UNKNOWN FREQ.
     Route: 065

REACTIONS (2)
  - Off label use [Unknown]
  - Drug-induced liver injury [Recovered/Resolved]
